FAERS Safety Report 14432713 (Version 1)
Quarter: 2018Q1

REPORT INFORMATION
  Report Type: Spontaneous
  Country: CA (occurrence: CA)
  Receive Date: 20180124
  Receipt Date: 20180124
  Transmission Date: 20180509
  Serious: Yes (Other)
  Sender: FDA-Public Use
  Company Number: CA-MIST-TIR-2018-0056

PATIENT
  Age: 15 Year
  Sex: Female

DRUGS (2)
  1. LEVOTHYROXINE. [Suspect]
     Active Substance: LEVOTHYROXINE
     Indication: HYPOTHYROIDISM
     Dosage: 50MCG, OD
     Route: 065
  2. LEVOTHYROXINE. [Suspect]
     Active Substance: LEVOTHYROXINE
     Dosage: 75MCG, OD
     Route: 065

REACTIONS (7)
  - Weight decreased [Unknown]
  - Polyglandular autoimmune syndrome type II [Not Recovered/Not Resolved]
  - Hypotension [Recovered/Resolved]
  - Condition aggravated [Recovering/Resolving]
  - Adrenocortical insufficiency acute [Not Recovered/Not Resolved]
  - Abdominal pain [Recovered/Resolved]
  - Fatigue [Recovered/Resolved]
